FAERS Safety Report 20575426 (Version 1)
Quarter: 2022Q1

REPORT INFORMATION
  Report Type: Spontaneous
  Country: US (occurrence: US)
  Receive Date: 20220310
  Receipt Date: 20220310
  Transmission Date: 20220423
  Serious: No
  Sender: FDA-Public Use
  Company Number: US-UNITED THERAPEUTICS-UNT-2022-003532

PATIENT
  Age: 57 Year
  Sex: Male
  Weight: 63.492 kg

DRUGS (4)
  1. REMODULIN [Suspect]
     Active Substance: TREPROSTINIL
     Indication: Pulmonary arterial hypertension
     Dosage: 0.0103 ?G/KG, CONTINUING
     Route: 058
     Dates: start: 20220209
  2. REMODULIN [Suspect]
     Active Substance: TREPROSTINIL
     Dosage: 0.0128 ?G/KG, CONTINUING
     Route: 058
     Dates: start: 202202
  3. OPSUMIT [Concomitant]
     Active Substance: MACITENTAN
     Indication: Product used for unknown indication
     Dosage: UNK
     Route: 065
  4. ELIQUIS [Concomitant]
     Active Substance: APIXABAN
     Indication: Product used for unknown indication
     Dosage: UNK
     Route: 065

REACTIONS (8)
  - Headache [Unknown]
  - Infusion site pain [Unknown]
  - Infusion site erythema [Unknown]
  - Infusion site swelling [Unknown]
  - Infusion site warmth [Unknown]
  - Diarrhoea [Unknown]
  - Hypertension [Unknown]
  - Swelling [Unknown]

NARRATIVE: CASE EVENT DATE: 20220201
